FAERS Safety Report 24068729 (Version 1)
Quarter: 2024Q3

REPORT INFORMATION
  Report Type: Report from Study
  Country: JP (occurrence: JP)
  Receive Date: 20240710
  Receipt Date: 20240710
  Transmission Date: 20241017
  Serious: No
  Sender: ROCHE
  Company Number: JP-CHUGAI-2024009201

PATIENT
  Age: 77 Year
  Sex: Male

DRUGS (7)
  1. FARICIMAB [Suspect]
     Active Substance: FARICIMAB
     Indication: Neovascular age-related macular degeneration
     Dosage: RIGHT EYE
     Route: 065
     Dates: start: 20221121, end: 20221121
  2. FARICIMAB [Suspect]
     Active Substance: FARICIMAB
     Dosage: RIGHT EYE
     Route: 065
     Dates: start: 20221226, end: 20221226
  3. FARICIMAB [Suspect]
     Active Substance: FARICIMAB
     Dosage: RIGHT EYE
     Route: 065
     Dates: start: 20230221, end: 20230221
  4. FARICIMAB [Suspect]
     Active Substance: FARICIMAB
     Dosage: RIGHT EYE
     Route: 065
     Dates: start: 20230414, end: 20230414
  5. FARICIMAB [Suspect]
     Active Substance: FARICIMAB
     Dosage: RIGHT EYE
     Route: 065
     Dates: start: 20230612, end: 20230612
  6. FARICIMAB [Suspect]
     Active Substance: FARICIMAB
     Dosage: RIGHT EYE
     Route: 065
     Dates: start: 20230810, end: 20230810
  7. FARICIMAB [Suspect]
     Active Substance: FARICIMAB
     Dosage: RIGHT EYE
     Route: 065
     Dates: start: 20231002, end: 20231002

REACTIONS (2)
  - Drug ineffective [Unknown]
  - No adverse event [Unknown]
